FAERS Safety Report 4760937-0 (Version None)
Quarter: 2005Q3

REPORT INFORMATION
  Report Type: 
  Country: None (occurrence: None)
  Receive Date: 20050901
  Receipt Date: 20050824
  Transmission Date: 20060218
  Serious: Yes (Hospitalization)
  Sender: FDA-Public Use
  Company Number: 200415146BCC

PATIENT
  Age: 79 Year
  Sex: Male
  Weight: 79.3795 kg

DRUGS (10)
  1. ALEVE (CAPLET) [Suspect]
     Indication: BACK PAIN
     Dosage: 440 MG, QD, ORAL
     Route: 048
     Dates: start: 20041010, end: 20041015
  2. ECOTRIN (ACETYLSALICYLIC ACID) [Suspect]
     Dosage: 81 MG, QD, ORAL
     Route: 048
  3. PLAVIX [Suspect]
     Dosage: 75 MG, QD
  4. HYZAAR [Concomitant]
  5. IMDUR [Concomitant]
  6. PLETAL [Concomitant]
  7. ZOCOR [Concomitant]
  8. VYTORIN [Concomitant]
  9. FLOMAX [Concomitant]
  10. FOLIC ACID [Concomitant]

REACTIONS (18)
  - ABDOMINAL DISTENSION [None]
  - ANAEMIA [None]
  - BACTERIAL SEPSIS [None]
  - BOWEL SOUNDS ABNORMAL [None]
  - CARDIAC FAILURE CONGESTIVE [None]
  - CLOSTRIDIUM COLITIS [None]
  - COMPUTERISED TOMOGRAM ABNORMAL [None]
  - DECUBITUS ULCER [None]
  - GASTRIC ULCER HAEMORRHAGE [None]
  - HAEMODIALYSIS [None]
  - HYPOKALAEMIA [None]
  - PERITONEAL DISORDER [None]
  - POST PROCEDURAL HAEMORRHAGE [None]
  - RENAL FAILURE [None]
  - RESPIRATORY FAILURE [None]
  - SINUS TACHYCARDIA [None]
  - SMALL INTESTINAL HAEMORRHAGE [None]
  - URINARY TRACT INFECTION PSEUDOMONAL [None]
